FAERS Safety Report 4775329-8 (Version None)
Quarter: 2005Q3

REPORT INFORMATION
  Report Type: 
  Country: None (occurrence: None)
  Receive Date: 20050922
  Receipt Date: 20050915
  Transmission Date: 20060218
  Serious: Yes (Life-Threatening, Hospitalization)
  Sender: FDA-Public Use
  Company Number: GB-BOEHRINGER INGELHEIM PHARMACEUTICALS, INC.-2005-UK-01755UK

PATIENT
  Age: 64 Year
  Sex: Male

DRUGS (5)
  1. MOBIC [Suspect]
     Indication: PSORIATIC ARTHROPATHY
     Route: 048
     Dates: end: 20050827
  2. ACETAMINOPHEN W/ CODEINE [Concomitant]
     Indication: ARTHRITIS
     Route: 048
  3. BETAMETHASONE [Concomitant]
     Dosage: STRENGTH 0.1%
     Route: 061
  4. COCOIS [Concomitant]
     Route: 061
  5. DOVONEX [Concomitant]
     Route: 065

REACTIONS (2)
  - DUODENAL ULCER [None]
  - MALAISE [None]
